FAERS Safety Report 25039559 (Version 2)
Quarter: 2025Q1

REPORT INFORMATION
  Report Type: Spontaneous
  Country: US (occurrence: US)
  Receive Date: 20250305
  Receipt Date: 20250330
  Transmission Date: 20250409
  Serious: Yes (Hospitalization)
  Sender: AMGEN
  Company Number: US-AMGEN-USASP2025039593

PATIENT
  Age: 82 Year
  Sex: Male

DRUGS (1)
  1. REPATHA [Suspect]
     Active Substance: EVOLOCUMAB
     Indication: Blood cholesterol abnormal
     Dosage: 140 MILLIGRAM, Q2WK
     Route: 065
     Dates: start: 20250218

REACTIONS (11)
  - Muscular weakness [Unknown]
  - Dry mouth [Unknown]
  - Chills [Unknown]
  - Flushing [Unknown]
  - Hyperhidrosis [Unknown]
  - Urine output decreased [Unknown]
  - Dry throat [Unknown]
  - Arthropathy [Unknown]
  - Fluid retention [Unknown]
  - Diarrhoea [Unknown]
  - Headache [Unknown]

NARRATIVE: CASE EVENT DATE: 20250222
